FAERS Safety Report 4976384-2 (Version None)
Quarter: 2006Q2

REPORT INFORMATION
  Report Type: 
  Country: None (occurrence: None)
  Receive Date: 20060412
  Receipt Date: 20060406
  Transmission Date: 20061013
  Serious: Yes (Hospitalization, Other)
  Sender: FDA-Public Use
  Company Number: 28975

PATIENT
  Age: 85 Year
  Sex: Male

DRUGS (4)
  1. FLECAINIDE ACETATE [Suspect]
     Indication: ATRIAL FIBRILLATION
     Dosage: 100 MG (100 MG, 1 IN 1 DAY (S)) ORAL
     Route: 048
     Dates: start: 20051017, end: 20051018
  2. CORDARONE [Suspect]
     Indication: ATRIAL FIBRILLATION
     Dosage: 1200 MG ORAL; 200 MG (200 MG, 1 IN 1 DAY (S)) ORAL;
     Dates: end: 20051017
  3. CORDARONE [Suspect]
     Indication: ATRIAL FIBRILLATION
     Dosage: 1200 MG ORAL; 200 MG (200 MG, 1 IN 1 DAY (S)) ORAL;
     Dates: start: 20051017, end: 20051018
  4. CORDARONE [Suspect]
     Indication: ATRIAL FIBRILLATION
     Dosage: 1200 MG ORAL; 200 MG (200 MG, 1 IN 1 DAY (S)) ORAL;
     Dates: start: 20051021

REACTIONS (7)
  - ATRIAL FIBRILLATION [None]
  - BRADYCARDIA [None]
  - DEVICE BREAKAGE [None]
  - FACIAL BONES FRACTURE [None]
  - FALL [None]
  - SYNCOPE [None]
  - TORSADE DE POINTES [None]
